FAERS Safety Report 5764870-7 (Version None)
Quarter: 2008Q2

REPORT INFORMATION
  Report Type: 
  Country: None (occurrence: None)
  Receive Date: 20080611
  Receipt Date: 20080530
  Transmission Date: 20081010
  Serious: Yes (Other)
  Sender: FDA-Public Use
  Company Number: UY-BAYER-200814719LA

PATIENT
  Age: 62 Year
  Sex: Male

DRUGS (2)
  1. NEXAVAR [Suspect]
     Indication: RENAL CANCER METASTATIC
     Route: 048
  2. NEXAVAR [Suspect]
     Route: 048

REACTIONS (2)
  - NERVE ROOT LESION [None]
  - PEMPHIGUS [None]
